FAERS Safety Report 10541566 (Version 2)
Quarter: 2014Q4

REPORT INFORMATION
  Report Type: Report from Study
  Country: US (occurrence: US)
  Receive Date: 20141024
  Receipt Date: 20141215
  Transmission Date: 20150529
  Serious: Yes (Other)
  Sender: FDA-Public Use
  Company Number: US-SA-2014SA142967

PATIENT
  Age: 71 Year
  Sex: Female

DRUGS (1)
  1. AUBAGIO [Suspect]
     Active Substance: TERIFLUNOMIDE
     Indication: MULTIPLE SCLEROSIS
     Route: 048
     Dates: start: 20140707

REACTIONS (4)
  - Visual impairment [Unknown]
  - Unevaluable event [Unknown]
  - Optic neuritis [Unknown]
  - Back pain [Unknown]
